FAERS Safety Report 8837880 (Version 5)
Quarter: 2015Q4

REPORT INFORMATION
  Report Type: Spontaneous
  Country: US (occurrence: US)
  Receive Date: 20121012
  Receipt Date: 20151009
  Transmission Date: 20160305
  Serious: Yes (Life-Threatening, Hospitalization, Disabling, Other)
  Sender: FDA-Public Use
  Company Number: US-PFIZER INC-2012249138

PATIENT
  Age: 42 Year
  Sex: Female
  Weight: 95.24 kg

DRUGS (16)
  1. AZITHROMYCIN [Suspect]
     Active Substance: AZITHROMYCIN ANHYDROUS
     Indication: SINUSITIS
     Dosage: 250 MG, UNK
     Route: 048
     Dates: start: 200512, end: 20051230
  2. HYDROCODONE [Suspect]
     Active Substance: HYDROCODONE
     Dosage: 5 MG, UNK
  3. PRISTINE [Concomitant]
     Active Substance: KETOCONAZOLE
     Dosage: UNK
  4. ZOLOFT [Suspect]
     Active Substance: SERTRALINE HYDROCHLORIDE
     Indication: BIPOLAR DISORDER
     Dosage: 50 MG, 1X/DAY
     Route: 048
     Dates: start: 20040409, end: 20051230
  5. FUROSEMIDE. [Suspect]
     Active Substance: FUROSEMIDE
     Dosage: TWO TABLETS OF 20 MG DAILY
     Route: 048
     Dates: end: 20051230
  6. HYDROCORTISONE. [Suspect]
     Active Substance: HYDROCORTISONE
     Dosage: UNK
  7. LORAZEPAM. [Suspect]
     Active Substance: LORAZEPAM
     Indication: SEIZURE
     Dosage: 10 MG, UNK
     Dates: start: 20051230, end: 20051230
  8. PRILOSEC [Suspect]
     Active Substance: OMEPRAZOLE MAGNESIUM
     Indication: GASTROOESOPHAGEAL REFLUX DISEASE
     Dosage: TWO CAPSULES OF 20 MG DAILY
     Route: 048
     Dates: end: 20051230
  9. PROMETHAZINE [Suspect]
     Active Substance: PROMETHAZINE\PROMETHAZINE HYDROCHLORIDE
     Dosage: 25 MG, UNK
  10. MECLIZINE [Suspect]
     Active Substance: MECLIZINE\MECLIZINE HYDROCHLORIDE
     Indication: DIZZINESS
     Dosage: 25 MG, UNK
     Route: 048
     Dates: start: 20051230, end: 20051230
  11. TOPAMAX [Suspect]
     Active Substance: TOPIRAMATE
     Indication: GENERALISED TONIC-CLONIC SEIZURE
     Dosage: 25 MG, UNK
  12. RANOXYL [Concomitant]
     Active Substance: AMOXICILLIN
     Dosage: UNK
  13. SEROQUEL [Suspect]
     Active Substance: QUETIAPINE FUMARATE
     Indication: BIPOLAR DISORDER
     Dosage: 4 MG, UNK
     Route: 048
     Dates: end: 20051230
  14. POTASSIUM CHLORIDE. [Suspect]
     Active Substance: POTASSIUM CHLORIDE
     Indication: BLOOD POTASSIUM DECREASED
     Dosage: UNK
     Route: 048
  15. PRILOSEC [Suspect]
     Active Substance: OMEPRAZOLE MAGNESIUM
     Indication: SINUSITIS
  16. AGAROL [Concomitant]
     Dosage: UNK

REACTIONS (15)
  - Abnormal behaviour [Unknown]
  - Fluid retention [Not Recovered/Not Resolved]
  - Overdose [Unknown]
  - Sinusitis [Recovered/Resolved]
  - Stasis dermatitis [Unknown]
  - Abdominal discomfort [Unknown]
  - Oedema [Unknown]
  - Post-traumatic stress disorder [Not Recovered/Not Resolved]
  - Lung disorder [Unknown]
  - Generalised tonic-clonic seizure [Unknown]
  - Coma [Recovered/Resolved]
  - Brain injury [Unknown]
  - Drug prescribing error [Unknown]
  - Head injury [Unknown]
  - Drug hypersensitivity [Unknown]

NARRATIVE: CASE EVENT DATE: 200512
